FAERS Safety Report 13536486 (Version 7)
Quarter: 2024Q3

REPORT INFORMATION
  Report Type: Report from Study
  Country: CA (occurrence: CA)
  Receive Date: 20170511
  Receipt Date: 20240703
  Transmission Date: 20241016
  Serious: Yes (Hospitalization, Other)
  Sender: ROCHE
  Company Number: CA-002147023-PHHY2017CA065158

PATIENT
  Age: 42 Year
  Sex: Female

DRUGS (6)
  1. XOLAIR [Suspect]
     Active Substance: OMALIZUMAB
     Indication: Chronic spontaneous urticaria
     Dosage: 300 MG, EVERY 4 WEEKS?SOLUTION FOR INJECTION IN PRE FILLED SYRINGE
     Route: 058
     Dates: start: 20170427, end: 20171205
  2. XOLAIR [Suspect]
     Active Substance: OMALIZUMAB
     Dosage: UNK?SOLUTION FOR INJECTION IN PRE FILLED SYRINGE
     Route: 058
     Dates: start: 20171205
  3. XOLAIR [Suspect]
     Active Substance: OMALIZUMAB
     Dosage: UNK?SOLUTION FOR INJECTION IN PRE FILLED SYRINGE
     Route: 058
     Dates: start: 20240306
  4. ZANTAC [Concomitant]
     Active Substance: RANITIDINE HYDROCHLORIDE
     Indication: Chronic spontaneous urticaria
     Dosage: 1 DF, BID
     Route: 048
     Dates: start: 201702
  5. CETIRIZINE HYDROCHLORIDE [Concomitant]
     Active Substance: CETIRIZINE HYDROCHLORIDE
     Indication: Chronic spontaneous urticaria
     Dosage: 1 DF, QD
     Route: 048
     Dates: start: 201702
  6. SINGULAIR [Concomitant]
     Active Substance: MONTELUKAST SODIUM
     Indication: Chronic spontaneous urticaria
     Dosage: 1 DF, QD
     Route: 048
     Dates: start: 201702

REACTIONS (14)
  - Anaphylactic reaction [Unknown]
  - Urticaria [Unknown]
  - Poor quality sleep [Unknown]
  - Chest pain [Unknown]
  - Choking sensation [Unknown]
  - Vomiting [Recovered/Resolved]
  - Cough [Unknown]
  - Rash [Unknown]
  - Angioedema [Unknown]
  - Wheezing [Not Recovered/Not Resolved]
  - Malaise [Unknown]
  - Drug ineffective [Unknown]
  - Chronic spontaneous urticaria [Unknown]
  - Condition aggravated [Unknown]

NARRATIVE: CASE EVENT DATE: 20170428
